FAERS Safety Report 16647863 (Version 2)
Quarter: 2019Q4

REPORT INFORMATION
  Report Type: Spontaneous
  Country: BR (occurrence: BR)
  Receive Date: 20190730
  Receipt Date: 20191211
  Transmission Date: 20200122
  Serious: Yes (Other)
  Sender: FDA-Public Use
  Company Number: BR-AMERICAN REGENT INC-20191609

PATIENT
  Sex: Female

DRUGS (2)
  1. VENOFER [Suspect]
     Active Substance: IRON SUCROSE
     Indication: MINERAL SUPPLEMENTATION
     Dosage: 1 DOSAGE FORM, 1 IN 1 WK
     Route: 042
     Dates: start: 201902, end: 201907
  2. AMYLOFER [Suspect]
     Active Substance: IRON POLYMALTOSE
     Indication: MINERAL SUPPLEMENTATION
     Dosage: 100 MILLIGRAM 1 IN 1 WK
     Route: 042
     Dates: start: 20190208, end: 20190214

REACTIONS (4)
  - Maternal exposure during pregnancy [Recovered/Resolved]
  - Product use in unapproved indication [Recovered/Resolved]
  - Product use issue [Recovered/Resolved]
  - No adverse event [Unknown]

NARRATIVE: CASE EVENT DATE: 20190208
